FAERS Safety Report 5075883-5 (Version None)
Quarter: 2006Q3

REPORT INFORMATION
  Report Type: 
  Country: None (occurrence: None)
  Receive Date: 20060807
  Receipt Date: 20060807
  Transmission Date: 20061208
  Serious: No
  Sender: FDA-Public Use
  Company Number: None

PATIENT
  Age: 42 Year
  Sex: Female
  Weight: 65.7716 kg

DRUGS (2)
  1. PAXIL [Suspect]
     Indication: ANXIETY
     Dosage: 20MG  ONCE A DAY  PO
     Route: 048
     Dates: start: 20000101, end: 20060801
  2. PAXIL [Suspect]
     Indication: DEPRESSION
     Dosage: 20MG  ONCE A DAY  PO
     Route: 048
     Dates: start: 20000101, end: 20060801

REACTIONS (5)
  - ANORGASMIA [None]
  - BRUXISM [None]
  - LIBIDO DECREASED [None]
  - NIGHT SWEATS [None]
  - TRISMUS [None]
